FAERS Safety Report 25921749 (Version 2)
Quarter: 2025Q4

REPORT INFORMATION
  Report Type: Report from Study
  Country: US (occurrence: US)
  Receive Date: 20251014
  Receipt Date: 20251114
  Transmission Date: 20260118
  Serious: Yes (Death, Hospitalization, Other)
  Sender: JOHNSON AND JOHNSON
  Company Number: US-JNJFOC-20251003361

PATIENT
  Age: 45 Year
  Sex: Male

DRUGS (1)
  1. CARVYKTI [Suspect]
     Active Substance: CILTACABTAGENE AUTOLEUCEL
     Indication: Plasma cell myeloma
     Dosage: TOTAL NUMBER OF CELLS ADMINISTERED: 53.64; TOTAL CELLS EXPONENT VALUE: 6
     Route: 065
     Dates: start: 2024, end: 2024

REACTIONS (13)
  - Guillain-Barre syndrome [Fatal]
  - Immune effector cell-associated neurotoxicity syndrome [Fatal]
  - Viral infection [Fatal]
  - COVID-19 [Fatal]
  - Cardiac failure [Fatal]
  - Gastrointestinal haemorrhage [Fatal]
  - Cytopenia [Fatal]
  - Ascites [Fatal]
  - Cardiomegaly [Fatal]
  - Pleural effusion [Fatal]
  - Pulmonary oedema [Fatal]
  - Plasma cell myeloma [Fatal]
  - West Nile viral infection [Unknown]

NARRATIVE: CASE EVENT DATE: 20241105
